FAERS Safety Report 21693070 (Version 3)
Quarter: 2023Q2

REPORT INFORMATION
  Report Type: Spontaneous
  Country: CA (occurrence: None)
  Receive Date: 20221207
  Receipt Date: 20230503
  Transmission Date: 20230721
  Serious: Yes (Hospitalization)
  Sender: FDA-Public Use
  Company Number: CA-ROCHE-3231317

PATIENT
  Age: 80 Year
  Sex: Male

DRUGS (3)
  1. RITUXIMAB [Suspect]
     Active Substance: RITUXIMAB
     Indication: Hairy cell leukaemia
     Route: 042
  2. ZELBORAF [Suspect]
     Active Substance: VEMURAFENIB
     Indication: Hairy cell leukaemia
     Route: 048
  3. CLADRIBINE [Concomitant]
     Active Substance: CLADRIBINE
     Route: 042

REACTIONS (18)
  - Agranulocytosis [Recovered/Resolved]
  - Anaemia [Recovered/Resolved]
  - Asthenia [Recovered/Resolved]
  - BRAF gene mutation [Recovered/Resolved]
  - Benign prostatic hyperplasia [Recovered/Resolved]
  - Dyspnoea exertional [Recovered/Resolved]
  - Fall [Unknown]
  - Fatigue [Recovered/Resolved]
  - Femur fracture [Recovered/Resolved]
  - Gastrointestinal lymphoma [Recovered/Resolved]
  - Injection site pain [Recovered/Resolved]
  - Liver palpable [Recovered/Resolved]
  - Osteoporosis [Recovered/Resolved]
  - Overgrowth bacterial [Recovered/Resolved]
  - Pancytopenia [Recovered/Resolved]
  - Pruritus [Recovered/Resolved]
  - Rash [Recovered/Resolved]
  - Off label use [Unknown]
